FAERS Safety Report 15305719 (Version 1)
Quarter: 2018Q4

REPORT INFORMATION
  Report Type: Spontaneous
  Country: US (occurrence: US)
  Receive Date: 20180822
  Receipt Date: 20180822
  Transmission Date: 20190204
  Serious: Yes (Hospitalization, Other)
  Sender: FDA-Public Use
  Company Number: US-CONCORDIA PHARMACEUTICALS INC.-GSH201808-003032

PATIENT
  Age: 36 Year
  Sex: Female

DRUGS (5)
  1. ALPRAZOLAM. [Concomitant]
     Active Substance: ALPRAZOLAM
  2. ARMODAFINIL. [Suspect]
     Active Substance: ARMODAFINIL
     Indication: SOMNOLENCE
     Route: 048
  3. TRANYLCYPROMINE TABLET [Suspect]
     Active Substance: TRANYLCYPROMINE
     Indication: ANTIDEPRESSANT THERAPY
     Route: 048
  4. BREXPIPRAZOLE [Suspect]
     Active Substance: BREXPIPRAZOLE
     Indication: PRODUCT USED FOR UNKNOWN INDICATION
     Route: 065
  5. TRANYLCYPROMINE TABLET [Suspect]
     Active Substance: TRANYLCYPROMINE
     Dosage: IN THE MORNING
     Route: 048

REACTIONS (6)
  - Nausea [Unknown]
  - Headache [Unknown]
  - Hypertensive crisis [Unknown]
  - Drug interaction [Unknown]
  - Musculoskeletal stiffness [Unknown]
  - Vision blurred [Unknown]
